FAERS Safety Report 9314298 (Version 1)
Quarter: 2013Q2

REPORT INFORMATION
  Report Type: Report from Study
  Country: CA (occurrence: CA)
  Receive Date: 20130529
  Receipt Date: 20130529
  Transmission Date: 20140414
  Serious: Yes (Death)
  Sender: FDA-Public Use
  Company Number: PHHY2013CA053723

PATIENT
  Age: 68 Year
  Sex: Female

DRUGS (2)
  1. ACLASTA [Suspect]
     Indication: OSTEOPOROSIS
     Dosage: UNK
     Route: 042
     Dates: start: 20110505
  2. ACLASTA [Suspect]
     Dosage: UNK
     Route: 042
     Dates: start: 20120528

REACTIONS (1)
  - Death [Fatal]
